FAERS Safety Report 12863414 (Version 2)
Quarter: 2016Q4

REPORT INFORMATION
  Report Type: Report from Study
  Country: CA (occurrence: CA)
  Receive Date: 20161019
  Receipt Date: 20161201
  Transmission Date: 20170207
  Serious: Yes (Death, Hospitalization)
  Sender: FDA-Public Use
  Company Number: CA-HLSUS-2016-CA-000548

PATIENT
  Age: 19 Year
  Sex: Male

DRUGS (9)
  1. APO DOCUSATE SODIUM [Concomitant]
     Dosage: 1 CAPSULE TWICE DAILY
  2. SYNTHROID [Concomitant]
     Active Substance: LEVOTHYROXINE SODIUM
     Dosage: 1 TABLET ONCE DAILY
  3. PERS SENNA LAXATIVE [Concomitant]
     Dosage: 2 TAB ONCE DAILY IF NEEDED
  4. CLOZARIL [Suspect]
     Active Substance: CLOZAPINE
     Dosage: 50 MG THREE TIMES DAILY
     Route: 048
     Dates: start: 20160811, end: 20160930
  5. DESMOPRESSIN [Concomitant]
     Active Substance: DESMOPRESSIN
     Dosage: 1 VAPORIZATION PER NOSTIL QSH
     Route: 045
  6. PMS-MONTELUKAST BLISTER [Concomitant]
     Dosage: 1 TABLET AT BED TIME
  7. APO-SALVENT [Concomitant]
     Active Substance: ALBUTEROL
     Dosage: 2 INHALATIONS 4 TIMES DAILY
  8. PMS-VENLAFAXINE XR [Concomitant]
     Dosage: 1 CAPSULE ONCE DAILY
  9. PERS VIT D [Concomitant]
     Dosage: 1 TABLETE ONCE DAILY

REACTIONS (4)
  - Death [Fatal]
  - Dysphagia [Unknown]
  - Pneumonia aspiration [Unknown]
  - Somnolence [Unknown]

NARRATIVE: CASE EVENT DATE: 20160930
